FAERS Safety Report 9228779 (Version 1)
Quarter: 2013Q2

REPORT INFORMATION
  Report Type: Spontaneous
  Country: FR (occurrence: FR)
  Receive Date: 20130412
  Receipt Date: 20130412
  Transmission Date: 20140414
  Serious: Yes (Hospitalization)
  Sender: FDA-Public Use
  Company Number: FR-MERCK-1304FRA002591

PATIENT
  Age: 57 Year
  Sex: Male

DRUGS (8)
  1. JANUVIA [Suspect]
     Indication: PRODUCT USED FOR UNKNOWN INDICATION
     Dosage: 100 MG, QD
     Route: 048
     Dates: start: 20121220, end: 20130120
  2. METFORMIN [Suspect]
     Indication: PRODUCT USED FOR UNKNOWN INDICATION
     Dosage: 850 MG, BID
     Route: 048
     Dates: start: 20121220, end: 20130120
  3. METFORMIN [Suspect]
     Dosage: 500 MG, BID
     Route: 048
     Dates: start: 20130321
  4. BRILIQUE [Concomitant]
     Dosage: 1 DF, BID
     Route: 048
     Dates: start: 20121220
  5. KARDEGIC [Concomitant]
     Dosage: 1 DF, QD
     Route: 048
     Dates: start: 20121220
  6. COVERSYL (PERINDOPRIL ARGININE) [Concomitant]
     Dosage: 1 DF, QD
     Route: 048
     Dates: start: 20121220
  7. TAHOR [Concomitant]
     Dosage: 1 DF, QD
     Route: 048
     Dates: start: 20121220
  8. KREDEX [Concomitant]
     Dosage: 1 DF, BID
     Route: 048
     Dates: start: 20121220

REACTIONS (3)
  - Palmoplantar keratoderma [Recovered/Resolved]
  - Dysgeusia [Recovered/Resolved]
  - Blood glucose fluctuation [Recovered/Resolved]
